FAERS Safety Report 8213987-6 (Version None)
Quarter: 2012Q1

REPORT INFORMATION
  Report Type: 
  Country: None (occurrence: None)
  Receive Date: 20120316
  Receipt Date: 20120314
  Transmission Date: 20120608
  Serious: No
  Sender: FDA-Public Use
  Company Number: US-PFIZER INC-2012061577

PATIENT
  Sex: Male
  Weight: 93.878 kg

DRUGS (4)
  1. CHANTIX [Suspect]
     Indication: SMOKING CESSATION THERAPY
     Dosage: 0.5 MG, 1X/DAY
     Route: 048
     Dates: start: 20110101, end: 20110101
  2. CHANTIX [Suspect]
     Dosage: 0.5 MG, 1X/DAY
     Route: 048
     Dates: start: 20120307, end: 20120307
  3. VALIUM [Concomitant]
     Indication: ANXIETY
     Dosage: 5 MG, UNK
  4. CHANTIX [Suspect]
     Dosage: 0.5 MG DAILY
     Route: 048
     Dates: start: 20120308

REACTIONS (2)
  - INCREASED APPETITE [None]
  - CONSTIPATION [None]
